FAERS Safety Report 6553884-5 (Version None)
Quarter: 2010Q1

REPORT INFORMATION
  Report Type: 
  Country: None (occurrence: None)
  Receive Date: 20100127
  Receipt Date: 20100121
  Transmission Date: 20100710
  Serious: Yes (Other)
  Sender: FDA-Public Use
  Company Number: DK-ROCHE-680760

PATIENT
  Age: 50 Year
  Sex: Female

DRUGS (3)
  1. HERCEPTIN [Suspect]
     Indication: DRUG USE FOR UNKNOWN INDICATION
     Dosage: DISCONTINUED.
     Route: 065
  2. HERCEPTIN [Suspect]
     Dosage: RECHALLENGED.
     Route: 065
  3. TAXOTERE [Concomitant]

REACTIONS (2)
  - DIARRHOEA [None]
  - GASTRITIS [None]
